FAERS Safety Report 9949289 (Version 4)
Quarter: 2014Q2

REPORT INFORMATION
  Report Type: Report from Study
  Country: JP (occurrence: JP)
  Receive Date: 20140304
  Receipt Date: 20140427
  Transmission Date: 20141212
  Serious: Yes (Hospitalization)
  Sender: FDA-Public Use
  Company Number: JP-ROCHE-1358049

PATIENT
  Age: 53 Year
  Sex: Female
  Weight: 47.1 kg

DRUGS (7)
  1. TRASTUZUMAB EMTANSINE [Suspect]
     Indication: BREAST CANCER METASTATIC
     Route: 042
     Dates: start: 20140203
  2. URSO [Concomitant]
     Indication: PROPHYLAXIS
     Dosage: BEGINNING OF DOSAGE DAY: TRIAL PREINITIATION
     Route: 048
     Dates: end: 20140302
  3. MAGMITT [Concomitant]
     Indication: CONSTIPATION
     Dosage: BEGINNING OF DOSAGE DAY: TRIAL PREINITIATION
     Route: 048
  4. REBAMIPIDE [Concomitant]
     Indication: GASTRITIS PROPHYLAXIS
     Dosage: BEGINNING OF DOSAGE DAY: TRIAL PREINITIATION
     Route: 048
  5. LOXOPROFEN [Concomitant]
     Indication: CANCER PAIN
     Dosage: SINGLE USE BEGINNING OF DOSAGE DAY: TRIAL PREINITIATION
     Route: 048
  6. SODIUM PICOSULFATE [Concomitant]
     Indication: CONSTIPATION
     Dosage: PROPER BEGINNING OF DOSAGE DAY: TRIAL PREINITIATION
     Route: 048
  7. HIRUDOID (JAPAN) [Concomitant]
     Indication: DRY SKIN PROPHYLAXIS
     Route: 061

REACTIONS (1)
  - Cholecystitis acute [Recovered/Resolved]
